FAERS Safety Report 5983186-7 (Version None)
Quarter: 2008Q4

REPORT INFORMATION
  Report Type: 
  Country: None (occurrence: None)
  Receive Date: 20081208
  Receipt Date: 20080313
  Transmission Date: 20090506
  Serious: No
  Sender: FDA-Public Use
  Company Number: US-BAYER-200811149BCC

PATIENT
  Age: 49 Year
  Sex: Female
  Weight: 58 kg

DRUGS (3)
  1. ALEVE-D SINUS + COLD [Suspect]
     Indication: NASOPHARYNGITIS
     Dosage: TOTAL DAILY DOSE: 2 DF  UNIT DOSE: 1 DF
     Route: 048
     Dates: start: 20071001
  2. ALEVE-D SINUS + COLD [Suspect]
     Dosage: TOTAL DAILY DOSE: 1 DF  UNIT DOSE: 1 DF
     Route: 048
  3. ALEVE-D SINUS + COLD [Suspect]
     Route: 048
     Dates: start: 20080312, end: 20080312

REACTIONS (3)
  - ANXIETY [None]
  - FEELING JITTERY [None]
  - INSOMNIA [None]
